FAERS Safety Report 8977837 (Version 1)
Quarter: 2012Q4

REPORT INFORMATION
  Report Type: Report from Study
  Country: CA (occurrence: CA)
  Receive Date: 20121220
  Receipt Date: 20121220
  Transmission Date: 20130627
  Serious: Yes (Other)
  Sender: FDA-Public Use
  Company Number: CA-ROCHE-1171796

PATIENT
  Sex: Male
  Weight: 79.09 kg

DRUGS (6)
  1. OMALIZUMAB [Suspect]
     Indication: ASTHMA
     Route: 058
     Dates: start: 20060922
  2. PREDNISONE [Concomitant]
     Dosage: for 10 days
     Route: 065
  3. PREDNISONE [Concomitant]
     Route: 065
  4. CORTISONE [Concomitant]
     Route: 065
  5. CORTISONE [Concomitant]
     Dosage: for 7 days
     Route: 065
  6. CORTISONE [Concomitant]
     Route: 065

REACTIONS (5)
  - Actinic keratosis [Unknown]
  - Influenza [Recovered/Resolved]
  - Pulmonary congestion [Unknown]
  - Rhinorrhoea [Unknown]
  - Nasal congestion [Recovered/Resolved]
